FAERS Safety Report 17607949 (Version 2)
Quarter: 2020Q3

REPORT INFORMATION
  Report Type: Spontaneous
  Country: CA (occurrence: CA)
  Receive Date: 20200401
  Receipt Date: 20200929
  Transmission Date: 20201102
  Serious: Yes (Hospitalization)
  Sender: FDA-Public Use
  Company Number: CA-OCTA-NGAM03520CA

PATIENT
  Age: 79 Year
  Sex: Female

DRUGS (3)
  1. REACTINE [Concomitant]
     Indication: PREMEDICATION
     Dosage: 1 HOUR BEFORE IVIG
     Route: 048
     Dates: start: 20200312
  2. RED BLOOD CELL [Concomitant]
     Active Substance: HUMAN RED BLOOD CELL
     Indication: ANAEMIA
     Dosage: 2 BLOOD BAGS 0+
     Route: 042
     Dates: start: 20200414
  3. PANZYGA [Suspect]
     Active Substance: HUMAN IMMUNOGLOBULIN G
     Indication: SECONDARY IMMUNODEFICIENCY
     Dosage: FAST RATE
     Route: 042
     Dates: start: 20200312, end: 20200407

REACTIONS (18)
  - Hypertension [Unknown]
  - Tremor [Unknown]
  - Tachypnoea [Unknown]
  - Haemolysis [Unknown]
  - Nausea [Unknown]
  - Crepitations [Unknown]
  - Feeling cold [Unknown]
  - Tachycardia [Unknown]
  - Febrile nonhaemolytic transfusion reaction [Unknown]
  - Dyspnoea [Unknown]
  - Anaemia [Unknown]
  - Asthenia [Unknown]
  - Pallor [Recovered/Resolved]
  - Wheezing [Unknown]
  - Anti A antibody positive [Unknown]
  - Chills [Unknown]
  - Pulmonary oedema [Unknown]
  - Cyanosis [Recovered/Resolved]

NARRATIVE: CASE EVENT DATE: 20200312
